FAERS Safety Report 5016643-0 (Version None)
Quarter: 2006Q2

REPORT INFORMATION
  Report Type: 
  Country: None (occurrence: None)
  Receive Date: 20060419
  Receipt Date: 20060116
  Transmission Date: 20061013
  Serious: No
  Sender: FDA-Public Use
  Company Number: USA0510111555

PATIENT
  Sex: Male

DRUGS (3)
  1. ALIMTA [Suspect]
     Indication: NON-SMALL CELL LUNG CANCER
     Dates: start: 20050901
  2. FOLIC ACID [Concomitant]
  3. VITAMIN B12 [Concomitant]

REACTIONS (2)
  - CONTUSION [None]
  - PAIN [None]
